FAERS Safety Report 6538303-7 (Version None)
Quarter: 2010Q1

REPORT INFORMATION
  Report Type: 
  Country: None (occurrence: None)
  Receive Date: 20100112
  Receipt Date: 20100112
  Transmission Date: 20100710
  Serious: Yes (Other)
  Sender: FDA-Public Use
  Company Number: None

PATIENT
  Age: 28 Year
  Sex: Female
  Weight: 96.6162 kg

DRUGS (8)
  1. CONCERTA [Suspect]
     Indication: ATTENTION DEFICIT/HYPERACTIVITY DISORDER
     Dosage: 36MG DAILY PO
     Route: 048
     Dates: start: 20091120, end: 20100112
  2. ALBUTEROL [Concomitant]
  3. RANITIDINE [Concomitant]
  4. MULTI-VITAMIN [Concomitant]
  5. CO-Q10 [Concomitant]
  6. LLYSINE [Concomitant]
  7. CALCIUM +D [Concomitant]
  8. ZYRTEC [Concomitant]

REACTIONS (5)
  - INSOMNIA [None]
  - LOSS OF LIBIDO [None]
  - MIGRAINE [None]
  - MOOD ALTERED [None]
  - WEIGHT INCREASED [None]
